FAERS Safety Report 8353186-0 (Version None)
Quarter: 2012Q2

REPORT INFORMATION
  Report Type: 
  Country: None (occurrence: None)
  Receive Date: 20120511
  Receipt Date: 20120510
  Transmission Date: 20120825
  Serious: Yes (Death, Life-Threatening)
  Sender: FDA-Public Use
  Company Number: AU-B.I. PHARMACEUTICALS,INC./RIDGEFIELD-2012-AU-00787AU

PATIENT
  Sex: Female

DRUGS (6)
  1. OXYCODONE HCL [Concomitant]
  2. LIPITOR [Concomitant]
  3. METOPROLOL TARTRATE [Concomitant]
     Dosage: 50 MG
  4. PRADAXA [Suspect]
     Indication: CEREBROVASCULAR ACCIDENT PROPHYLAXIS
     Dosage: 220 MG
     Dates: end: 20120413
  5. PRADAXA [Suspect]
     Indication: ATRIAL FIBRILLATION
  6. PANTOPRAZOLE [Concomitant]

REACTIONS (2)
  - GASTROINTESTINAL HAEMORRHAGE [None]
  - CARDIAC ARREST [None]
